FAERS Safety Report 9626489 (Version 2)
Quarter: 2013Q4

REPORT INFORMATION
  Report Type: Spontaneous
  Country: JP (occurrence: JP)
  Receive Date: 20131016
  Receipt Date: 20131106
  Transmission Date: 20140711
  Serious: Yes (Hospitalization)
  Sender: FDA-Public Use
  Company Number: JP-TAKEDA-TCI2013A06076

PATIENT
  Age: 58 Year
  Sex: Male
  Weight: 92.8 kg

DRUGS (2)
  1. LANSAP 800 [Suspect]
     Indication: HELICOBACTER INFECTION
     Dosage: 0.5 DF, BID
     Route: 048
     Dates: start: 20040302, end: 20040308
  2. TAKEPRON CAPSULES 30 [Suspect]
     Indication: GASTROOESOPHAGEAL REFLUX DISEASE
     Dosage: 15 MG, 1 DAYS
     Route: 048
     Dates: start: 200404

REACTIONS (3)
  - Gastric polyps [Recovering/Resolving]
  - Condition aggravated [Recovering/Resolving]
  - Hypergastrinaemia [Unknown]
